FAERS Safety Report 15794895 (Version 3)
Quarter: 2019Q1

REPORT INFORMATION
  Report Type: Report from Study
  Country: US (occurrence: US)
  Receive Date: 20190107
  Receipt Date: 20190225
  Transmission Date: 20190417
  Serious: No
  Sender: FDA-Public Use
  Company Number: PHEH2018US055507

PATIENT
  Sex: Female
  Weight: 93.89 kg

DRUGS (2)
  1. COSENTYX [Suspect]
     Active Substance: SECUKINUMAB
     Indication: PSORIASIS
     Route: 058
     Dates: start: 201712
  2. COSENTYX [Interacting]
     Active Substance: SECUKINUMAB
     Indication: PSORIATIC ARTHROPATHY

REACTIONS (4)
  - Psoriasis [Unknown]
  - Herpes zoster [Recovering/Resolving]
  - Drug interaction [Unknown]
  - Drug ineffective [Unknown]
